FAERS Safety Report 15676202 (Version 1)
Quarter: 2018Q4

REPORT INFORMATION
  Report Type: Report from Study
  Country: BR (occurrence: BR)
  Receive Date: 20181130
  Receipt Date: 20181130
  Transmission Date: 20190205
  Serious: Yes (Other)
  Sender: FDA-Public Use
  Company Number: PHHY2018BR009341

PATIENT
  Sex: Male
  Weight: 11.4 kg

DRUGS (3)
  1. OMNITROPE [Suspect]
     Active Substance: SOMATROPIN
     Indication: COGNITIVE DISORDER
     Dosage: 0.40 MG, UNK (MONDAY THROUGH SATURDAY)
     Route: 058
  2. OMNITROPE [Suspect]
     Active Substance: SOMATROPIN
     Indication: GENERAL PHYSICAL HEALTH DETERIORATION
  3. OMNITROPE [Suspect]
     Active Substance: SOMATROPIN
     Indication: NEUROLOGICAL SYMPTOM

REACTIONS (4)
  - Insomnia [Not Recovered/Not Resolved]
  - Blood thyroid stimulating hormone abnormal [Unknown]
  - Epilepsy [Unknown]
  - Product use in unapproved indication [Unknown]
